FAERS Safety Report 8585503 (Version 5)
Quarter: 2013Q2

REPORT INFORMATION
  Report Type: Spontaneous
  Country: US (occurrence: None)
  Receive Date: 20120522
  Receipt Date: 20130514
  Transmission Date: 20140414
  Serious: Yes (Hospitalization, Other)
  Sender: FDA-Public Use
  Company Number: 2012-001808

PATIENT
  Age: 84 Year
  Sex: Female

DRUGS (16)
  1. ACTONEL (RISEDRONATE SODIUM) TABLET, 150MG [Suspect]
     Indication: OSTEOPOROSIS
     Route: 048
     Dates: start: 20100430, end: 201010
  2. FOSAMAX [Suspect]
     Indication: OSTEOPOROSIS
     Dosage: 70 MG EVERY OTHER MONDAY, ORAL
     Route: 048
     Dates: start: 2006
  3. FOSAMAX PLUS D (ALENDRONATE SODIUM, COLECALCIFEROL) [Suspect]
     Indication: OSTEOPOROSIS
     Dosage: ORAL
  4. ALENDRONATE SODIUM [Suspect]
     Indication: OSTEOPOROSIS
     Dosage: ORAL
     Route: 048
     Dates: start: 2009
  5. DIGOXIN (DIGOXIN) [Concomitant]
  6. ASPIRIN (ACETYLSALICYLIC ACID) [Concomitant]
  7. METOPROLOL (METOPROLOL) [Concomitant]
  8. TORSEMIDE [Concomitant]
  9. AVAPRO (IRBESARTAN) [Concomitant]
  10. LIPITOR (ATORVASTATIN CALCIUM) [Concomitant]
  11. COUMADIN (COUMARIN) [Concomitant]
  12. ZYRTEC (CETIRIZINE HYDROCHLORIDE) [Concomitant]
  13. FERROUS SULFATE (FERROUS SULFATE) [Concomitant]
  14. FOLATE (FOLIC ACID) [Concomitant]
  15. CALCIUM (CALCIUM) [Concomitant]
  16. VITAMIN D (COLECALCIFEROL) [Concomitant]

REACTIONS (14)
  - Stress fracture [None]
  - Femur fracture [None]
  - Skeletal injury [None]
  - Toxicity to various agents [None]
  - Pain [None]
  - Low turnover osteopathy [None]
  - Arthralgia [None]
  - Osteoma [None]
  - Abdominal discomfort [None]
  - Pain in extremity [None]
  - Back pain [None]
  - Dizziness [None]
  - Loss of consciousness [None]
  - Fall [None]
